FAERS Safety Report 21470600 (Version 1)
Quarter: 2022Q4

REPORT INFORMATION
  Report Type: Report from Study
  Country: US (occurrence: US)
  Receive Date: 20221018
  Receipt Date: 20221018
  Transmission Date: 20230113
  Serious: No
  Sender: FDA-Public Use
  Company Number: US-ABBVIE-4165410

PATIENT
  Sex: Female

DRUGS (7)
  1. HUMIRA [Suspect]
     Active Substance: ADALIMUMAB
     Indication: Rheumatoid arthritis
     Route: 058
  2. Pfizer BioNTech COVID-19 vaccin [Concomitant]
     Indication: COVID-19 immunisation
     Dosage: ONE IN ONCE, 1ST DOSE
     Route: 030
     Dates: start: 20210101, end: 20210101
  3. Pfizer BioNTech COVID-19 vaccin [Concomitant]
     Indication: COVID-19 immunisation
     Dosage: ONE IN ONCE, 2ND DOSE
     Route: 030
     Dates: start: 20210201, end: 20210201
  4. Pfizer BioNTech COVID-19 vaccin [Concomitant]
     Indication: COVID-19 immunisation
     Dosage: ONE IN ONCE, BOOSTER DOSE
     Route: 030
     Dates: start: 20211201, end: 20211201
  5. Pfizer BioNTech COVID-19 vaccin [Concomitant]
     Indication: COVID-19 immunisation
     Dosage: ONE IN ONCE, 1ST DOSE
     Route: 030
     Dates: start: 20210101, end: 20210101
  6. Pfizer BioNTech COVID-19 vaccin [Concomitant]
     Indication: COVID-19 immunisation
     Dosage: ONE IN ONCE, 2ND DOSE
     Route: 030
     Dates: start: 20210201, end: 20210201
  7. Pfizer BioNTech COVID-19 vaccin [Concomitant]
     Indication: COVID-19 immunisation
     Dosage: ONE IN ONCE, BOOSTER DOSE
     Route: 030
     Dates: start: 20211201, end: 20211201

REACTIONS (2)
  - Road traffic accident [Unknown]
  - Neck pain [Unknown]
